FAERS Safety Report 8243813-0 (Version None)
Quarter: 2012Q1

REPORT INFORMATION
  Report Type: 
  Country: None (occurrence: None)
  Receive Date: 20120329
  Receipt Date: 20120126
  Transmission Date: 20120608
  Serious: No
  Sender: FDA-Public Use
  Company Number: US-MYLANLABS-2012S1002007

PATIENT
  Age: 67 Year
  Sex: Male

DRUGS (3)
  1. LEVOTHROID [Concomitant]
     Indication: THYROID DISORDER
  2. EMSAM [Suspect]
     Indication: DEPRESSION
     Dosage: QD
     Route: 062
     Dates: start: 20070101
  3. XANAX [Concomitant]
     Indication: INSOMNIA

REACTIONS (2)
  - DEPRESSION [None]
  - DRUG EFFECT DECREASED [None]
